FAERS Safety Report 16320292 (Version 3)
Quarter: 2019Q2

REPORT INFORMATION
  Report Type: Spontaneous
  Country: US (occurrence: US)
  Receive Date: 20190516
  Receipt Date: 20190620
  Transmission Date: 20190711
  Serious: No
  Sender: FDA-Public Use
  Company Number: US-PFIZER INC-2019207078

PATIENT
  Age: 74 Year
  Sex: Female

DRUGS (1)
  1. PREMARIN [Suspect]
     Active Substance: ESTROGENS, CONJUGATED
     Dosage: 0.625 MG, 2X/WEEK (LITTLE SYRINGE, INSERTED VAGINALLY TWICE A WEEK )
     Route: 067
     Dates: end: 2019

REACTIONS (3)
  - Pruritus [Recovered/Resolved]
  - Off label use [Unknown]
  - Urticaria [Recovered/Resolved]
